FAERS Safety Report 20926409 (Version 2)
Quarter: 2022Q3

REPORT INFORMATION
  Report Type: Spontaneous
  Country: US (occurrence: US)
  Receive Date: 20220607
  Receipt Date: 20220719
  Transmission Date: 20221026
  Serious: Yes (Death, Other)
  Sender: FDA-Public Use
  Company Number: US-AMGEN-USASP2022094712

PATIENT
  Sex: Male

DRUGS (5)
  1. RITUXIMAB [Suspect]
     Active Substance: RITUXIMAB
     Indication: ABO incompatibility
     Dosage: UNK
     Route: 065
  2. RITUXIMAB [Suspect]
     Active Substance: RITUXIMAB
     Indication: Off label use
  3. BORTEZOMIB [Concomitant]
     Active Substance: BORTEZOMIB
  4. LENALIDOMIDE [Concomitant]
     Active Substance: LENALIDOMIDE
  5. DEXAMETHASONE [Concomitant]
     Active Substance: DEXAMETHASONE

REACTIONS (3)
  - Plasma cell myeloma recurrent [Fatal]
  - Pneumonia [Unknown]
  - Off label use [Unknown]
